FAERS Safety Report 13824189 (Version 3)
Quarter: 2017Q4

REPORT INFORMATION
  Report Type: Spontaneous
  Country: JP (occurrence: JP)
  Receive Date: 20170802
  Receipt Date: 20171211
  Transmission Date: 20180320
  Serious: Yes (Hospitalization, Other)
  Sender: FDA-Public Use
  Company Number: JP-AMGEN-JPNSP2017116573

PATIENT
  Age: 59 Year
  Sex: Female
  Weight: 68 kg

DRUGS (10)
  1. NEXIUM [Concomitant]
     Active Substance: ESOMEPRAZOLE MAGNESIUM
     Indication: ADVERSE REACTION
     Dosage: 10 MG, QD
     Route: 048
     Dates: start: 20160623, end: 20160818
  2. DECADRON [Concomitant]
     Active Substance: DEXAMETHASONE
     Dosage: 4 MG, QD
     Route: 042
     Dates: start: 20160623, end: 20160822
  3. LORAZEPAM. [Concomitant]
     Active Substance: LORAZEPAM
     Indication: ADVERSE REACTION
     Dosage: 0.5 MG, QD
     Route: 048
     Dates: start: 20160623, end: 20160823
  4. G-LASTA [Suspect]
     Active Substance: PEGFILGRASTIM
     Indication: COLONY STIMULATING FACTOR PROPHYLAXIS
     Dosage: 3.6 MG, 1X/3WEEKS
     Route: 058
     Dates: start: 20160627, end: 20160821
  5. EPIRUBICIN HYDROCHLORIDE. [Suspect]
     Active Substance: EPIRUBICIN HYDROCHLORIDE
     Indication: BREAST CANCER
     Dosage: 150 MG, 1X/3WEEKS
     Route: 041
     Dates: start: 20160623, end: 20160818
  6. ALOXI [Concomitant]
     Active Substance: PALONOSETRON HYDROCHLORIDE
     Indication: ADVERSE REACTION
     Dosage: 0.75 MG, 1X/3WEEKS
     Route: 042
     Dates: start: 20160623, end: 20160818
  7. MAGMITT [Concomitant]
     Active Substance: MAGNESIUM OXIDE
     Indication: ADVERSE REACTION
     Dosage: 330 MG, BID
     Route: 048
     Dates: start: 20160623, end: 20160822
  8. LEVOFLOXACIN HEMIHYDRATE [Concomitant]
     Active Substance: LEVOFLOXACIN
     Indication: INTERSTITIAL LUNG DISEASE
     Dosage: 500 MG, QD
     Route: 048
     Dates: start: 20160829, end: 20160830
  9. ENDOXAN                            /00021101/ [Suspect]
     Active Substance: CYCLOPHOSPHAMIDE
     Indication: BREAST CANCER
     Dosage: 1000 MG, 1X/3WEEKS
     Route: 041
     Dates: start: 20160623, end: 20160818
  10. DECADRON [Concomitant]
     Active Substance: DEXAMETHASONE
     Indication: ADVERSE REACTION
     Dosage: 9.9 MG, 1X/3WEEKS
     Route: 042
     Dates: start: 20160623, end: 20160818

REACTIONS (1)
  - Interstitial lung disease [Recovered/Resolved]

NARRATIVE: CASE EVENT DATE: 20160830
